FAERS Safety Report 8616328 (Version 4)
Quarter: 2013Q4

REPORT INFORMATION
  Report Type: Spontaneous
  Country: JP (occurrence: JP)
  Receive Date: 20120614
  Receipt Date: 20131031
  Transmission Date: 20140711
  Serious: Yes (Other)
  Sender: FDA-Public Use
  Company Number: JP-009507513-1206USA01524

PATIENT
  Age: 63 Year
  Sex: Male

DRUGS (5)
  1. PEPCID [Suspect]
     Route: 048
  2. ITRACONAZOLE [Interacting]
     Dosage: 50 MG, QD
     Route: 048
  3. ITRACONAZOLE [Interacting]
     Dosage: 100 MG, QD
     Route: 048
  4. MK-9350 [Concomitant]
     Route: 048
  5. CEFCAPENE PIVOXIL HYDROCHLORIDE [Concomitant]
     Route: 048

REACTIONS (1)
  - Drug interaction [Unknown]
